FAERS Safety Report 6131175-4 (Version None)
Quarter: 2009Q1

REPORT INFORMATION
  Report Type: 
  Country: None (occurrence: None)
  Receive Date: 20090325
  Receipt Date: 20090320
  Transmission Date: 20090719
  Serious: Yes (Disabling, Other)
  Sender: FDA-Public Use
  Company Number: US-WYE-H08659909

PATIENT
  Sex: Male
  Weight: 88.98 kg

DRUGS (5)
  1. CORDARONE [Suspect]
     Indication: ATRIAL FIBRILLATION
     Route: 048
  2. BENICAR [Concomitant]
     Dosage: DOSE UNKNOWN
     Route: 065
  3. COUMADIN [Concomitant]
     Dosage: DOSE UNKNOWN
     Route: 065
  4. COREG [Concomitant]
     Dosage: DOSE UNKNOWN
     Route: 065
  5. ACETYLSALICYLIC ACID [Concomitant]
     Dosage: DOSE UNKNOWN
     Route: 065

REACTIONS (3)
  - DEAFNESS [None]
  - GAIT DISTURBANCE [None]
  - HYPOTHYROIDISM [None]
